FAERS Safety Report 23200053 (Version 1)
Quarter: 2023Q4

REPORT INFORMATION
  Report Type: Spontaneous
  Country: GB (occurrence: None)
  Receive Date: 20231117
  Receipt Date: 20231117
  Transmission Date: 20240109
  Serious: Yes (Disabling)
  Sender: FDA-Public Use
  Company Number: None

PATIENT
  Sex: Female

DRUGS (1)
  1. RASAGILINE [Suspect]
     Active Substance: RASAGILINE
     Indication: Parkinsonism
     Dosage: 1MG DAILY ; ;

REACTIONS (1)
  - Tendon pain [Recovered/Resolved]

NARRATIVE: CASE EVENT DATE: 20230401
